FAERS Safety Report 13610367 (Version 1)
Quarter: 2017Q2

REPORT INFORMATION
  Report Type: Spontaneous
  Country: US (occurrence: US)
  Receive Date: 20170602
  Receipt Date: 20170602
  Transmission Date: 20170830
  Serious: Yes (Life-Threatening, Disabling)
  Sender: FDA-Public Use
  Company Number: None

PATIENT
  Age: 68 Year
  Sex: Male
  Weight: 85.5 kg

DRUGS (18)
  1. HYDROXICHLOROQUINE [Concomitant]
  2. VITAMIN E [Concomitant]
     Active Substance: .ALPHA.-TOCOPHEROL
  3. SELENIUM [Concomitant]
     Active Substance: SELENIUM
  4. BISOPROLOL/HCTZ [Concomitant]
     Active Substance: BISOPROLOL FUMARATE\HYDROCHLOROTHIAZIDE
  5. FLAXSEED [Concomitant]
     Active Substance: FLAX SEED
  6. INDOMETHESIN [Suspect]
     Active Substance: INDOMETHACIN
     Indication: JOINT SWELLING
     Route: 048
  7. INDOMETHESIN [Suspect]
     Active Substance: INDOMETHACIN
     Indication: PAIN
     Route: 048
  8. CYMBALTA [Suspect]
     Active Substance: DULOXETINE HYDROCHLORIDE
     Indication: PAIN
     Route: 048
  9. ALLOPURINOL. [Concomitant]
     Active Substance: ALLOPURINOL
  10. GARLIC. [Concomitant]
     Active Substance: GARLIC
  11. CYMBALTA [Suspect]
     Active Substance: DULOXETINE HYDROCHLORIDE
     Indication: ANXIETY
     Route: 048
  12. POTASSIUM [Concomitant]
     Active Substance: POTASSIUM
  13. CENTRUM SILVER MULTI VITAMINS [Concomitant]
  14. LOW DOSE ASPIRIN [Concomitant]
     Active Substance: ASPIRIN
  15. VITAMIN C [Concomitant]
     Active Substance: ASCORBIC ACID
  16. VITAMIN D [Concomitant]
     Active Substance: CHOLECALCIFEROL
  17. VERAPERMIL [Concomitant]
  18. BETA CAROTENE [Concomitant]

REACTIONS (1)
  - Prostate cancer [None]

NARRATIVE: CASE EVENT DATE: 20020301
